FAERS Safety Report 26053578 (Version 1)
Quarter: 2025Q4

REPORT INFORMATION
  Report Type: Spontaneous
  Country: US (occurrence: None)
  Receive Date: 20251116
  Receipt Date: 20251116
  Transmission Date: 20260117
  Serious: Yes (Hospitalization, Disabling, Other)
  Sender: FDA-CTU
  Company Number: None

PATIENT
  Age: 39 Year
  Sex: Female
  Weight: 75.15 kg

DRUGS (2)
  1. ZIPRASIDONE [Suspect]
     Active Substance: ZIPRASIDONE
  2. DOXEPIN [Suspect]
     Active Substance: DOXEPIN

REACTIONS (4)
  - Cerebrovascular accident [None]
  - Seizure [None]
  - Withdrawal syndrome [None]
  - Conversion disorder [None]

NARRATIVE: CASE EVENT DATE: 20250823
